FAERS Safety Report 5535674-5 (Version None)
Quarter: 2007Q4

REPORT INFORMATION
  Report Type: 
  Country: None (occurrence: None)
  Receive Date: 20071204
  Receipt Date: 20071204
  Transmission Date: 20080405
  Serious: Yes (Hospitalization)
  Sender: FDA-Public Use
  Company Number: None

PATIENT
  Sex: Female
  Weight: 22.7252 kg

DRUGS (1)
  1. METHOTREXATE [Suspect]
     Indication: BONE SARCOMA
     Dosage: 13,000 MG OVER 4 HOURS IV
     Route: 042
     Dates: start: 20071106

REACTIONS (3)
  - INFUSION RELATED REACTION [None]
  - NEUTROPENIA [None]
  - THROMBOCYTOPENIA [None]
